FAERS Safety Report 8565888 (Version 2)
Quarter: 2012Q4

REPORT INFORMATION
  Report Type: 
  Country: PT (occurrence: PT)
  Receive Date: 20120516
  Receipt Date: 20121228
  Transmission Date: 20130627
  Serious: Yes (Hospitalization, Other)
  Sender: FDA-Public Use
  Company Number: PT-ROCHE-1066761

PATIENT
  Age: 43 None
  Sex: Male
  Weight: 86.6 kg

DRUGS (6)
  1. ROACTEMRA [Suspect]
     Indication: RHEUMATOID ARTHRITIS
     Dosage: 700 Total monthly dose (mg)
     Route: 042
     Dates: start: 201112
  2. ROACTEMRA [Suspect]
     Route: 042
     Dates: start: 201201
  3. ROACTEMRA [Suspect]
     Route: 042
     Dates: start: 201206, end: 20121109
  4. ROACTEMRA [Suspect]
     Dosage: 600 mg monthyl
     Route: 042
     Dates: start: 20120731
  5. ROACTEMRA [Suspect]
     Dosage: 700 mg monthly
     Route: 042
     Dates: start: 20120904
  6. ROACTEMRA [Suspect]
     Dosage: 700 mg monthly
     Route: 042
     Dates: start: 20121002, end: 20121109

REACTIONS (8)
  - Arthritis bacterial [Recovering/Resolving]
  - Infection [Recovering/Resolving]
  - Soft tissue infection [Recovering/Resolving]
  - Abdominal wall infection [Recovering/Resolving]
  - Antiphospholipid syndrome [Recovered/Resolved]
  - Hypertension [Recovered/Resolved]
  - Hypercholesterolaemia [Recovered/Resolved]
  - Rheumatoid nodule [Recovered/Resolved]
